FAERS Safety Report 7806347-0 (Version None)
Quarter: 2011Q4

REPORT INFORMATION
  Report Type: 
  Country: None (occurrence: None)
  Receive Date: 20111011
  Receipt Date: 20110930
  Transmission Date: 20120403
  Serious: Yes (Hospitalization)
  Sender: FDA-Public Use
  Company Number: CA-JNJFOC-20110906629

PATIENT
  Sex: Female
  Weight: 86 kg

DRUGS (4)
  1. BENADRYL [Concomitant]
     Route: 042
  2. REMICADE [Suspect]
     Route: 042
     Dates: start: 20110913, end: 20110913
  3. REMICADE [Suspect]
     Indication: CROHN'S DISEASE
     Route: 042
     Dates: start: 20110616
  4. SOLU-CORTEF [Concomitant]
     Route: 042

REACTIONS (5)
  - SINUS TACHYCARDIA [None]
  - PALLOR [None]
  - URTICARIA [None]
  - CHEST PAIN [None]
  - INFUSION RELATED REACTION [None]
